FAERS Safety Report 12135295 (Version 1)
Quarter: 2016Q1

REPORT INFORMATION
  Report Type: Spontaneous
  Country: US (occurrence: US)
  Receive Date: 20160302
  Receipt Date: 20160302
  Transmission Date: 20160526
  Serious: Yes (Hospitalization, Other)
  Sender: FDA-Public Use
  Company Number: US-ASTRAZENECA-2016SE19203

PATIENT
  Age: 76 Year
  Sex: Female

DRUGS (2)
  1. TUDORZA PRESSAIR [Suspect]
     Active Substance: ACLIDINIUM BROMIDE
     Route: 055
     Dates: start: 20130222
  2. SYMBICORT [Suspect]
     Active Substance: BUDESONIDE\FORMOTEROL FUMARATE DIHYDRATE
     Route: 065

REACTIONS (6)
  - Drug-induced liver injury [Unknown]
  - Renal failure [Unknown]
  - Malaise [Unknown]
  - Underdose [Unknown]
  - Product quality issue [Unknown]
  - Sialoadenitis [Recovering/Resolving]

NARRATIVE: CASE EVENT DATE: 2015
